FAERS Safety Report 12632836 (Version 2)
Quarter: 2016Q3

REPORT INFORMATION
  Report Type: Spontaneous
  Country: US (occurrence: US)
  Receive Date: 20160808
  Receipt Date: 20160808
  Transmission Date: 20161109
  Serious: No
  Sender: FDA-Public Use
  Company Number: US-BEH-2015057192

PATIENT
  Sex: Female
  Weight: 56 kg

DRUGS (31)
  1. EVISTA [Concomitant]
     Active Substance: RALOXIFENE HYDROCHLORIDE
  2. HYDROCODONE-ACETAMINOPHEN [Concomitant]
     Active Substance: ACETAMINOPHEN\HYDROCODONE
  3. SPIRIVA [Concomitant]
     Active Substance: TIOTROPIUM BROMIDE MONOHYDRATE
  4. PROMETHAZINE [Concomitant]
     Active Substance: PROMETHAZINE\PROMETHAZINE HYDROCHLORIDE
  5. BUTALBITAL-ASA-CAFFEINE [Concomitant]
  6. CYCLOBENZAPRINE [Concomitant]
     Active Substance: CYCLOBENZAPRINE
  7. MILK OF MAGNESIA [Concomitant]
     Active Substance: MAGNESIUM HYDROXIDE
  8. ESTRACE [Concomitant]
     Active Substance: ESTRADIOL
  9. DAILY MULTIVITAMIN-IRON [Concomitant]
  10. ALL DAY CALCIUM ER [Concomitant]
  11. HIZENTRA [Suspect]
     Active Substance: HUMAN IMMUNOGLOBULIN G
     Indication: HYPOGLOBULINAEMIA
     Route: 058
  12. L-M-X [Concomitant]
  13. AMOXICILLIN. [Concomitant]
     Active Substance: AMOXICILLIN
  14. DIPHENHYDRAMINE. [Concomitant]
     Active Substance: DIPHENHYDRAMINE
  15. EPIPEN [Concomitant]
     Active Substance: EPINEPHRINE
  16. ZYRTEC [Concomitant]
     Active Substance: CETIRIZINE HYDROCHLORIDE
  17. ASPIRIN. [Concomitant]
     Active Substance: ASPIRIN
  18. LIPITOR [Concomitant]
     Active Substance: ATORVASTATIN CALCIUM
  19. CLINDAMYCIN [Concomitant]
     Active Substance: CLINDAMYCIN\CLINDAMYCIN PHOSPHATE
  20. LEVAQUIN [Concomitant]
     Active Substance: LEVOFLOXACIN
  21. SINGULAIR [Concomitant]
     Active Substance: MONTELUKAST SODIUM
  22. ALBUTEROL. [Concomitant]
     Active Substance: ALBUTEROL
  23. BACITRACIN/GENTRIMICIN IN NORMAL SALINE [Concomitant]
  24. PROAIR HFA [Concomitant]
     Active Substance: ALBUTEROL SULFATE
  25. SIMVASTATIN. [Concomitant]
     Active Substance: SIMVASTATIN
  26. TOPIRAMATE. [Concomitant]
     Active Substance: TOPIRAMATE
  27. CARDIZEM [Concomitant]
     Active Substance: DILTIAZEM HYDROCHLORIDE
  28. NITROSTAT [Concomitant]
     Active Substance: NITROGLYCERIN
  29. SYMBICORT [Concomitant]
     Active Substance: BUDESONIDE\FORMOTEROL FUMARATE DIHYDRATE
  30. OMEPRAZOLE. [Concomitant]
     Active Substance: OMEPRAZOLE
  31. VITAMIN D [Concomitant]
     Active Substance: CHOLECALCIFEROL

REACTIONS (1)
  - Sinusitis [Unknown]
